FAERS Safety Report 9139536 (Version 1)
Quarter: 2013Q1

REPORT INFORMATION
  Report Type: Spontaneous
  Country: US (occurrence: US)
  Receive Date: 20130305
  Receipt Date: 20130305
  Transmission Date: 20140127
  Serious: No
  Sender: FDA-Public Use
  Company Number: US-ENDO PHARMACEUTICALS INC.-SPLN20110053

PATIENT
  Age: 6 Year
  Sex: Female
  Weight: 28.1 kg

DRUGS (4)
  1. SUPPRELIN LA [Suspect]
     Indication: PRECOCIOUS PUBERTY
     Route: 058
     Dates: start: 20100521, end: 20110512
  2. VINBLASTINE [Concomitant]
     Indication: ASTROCYTOMA
     Route: 065
     Dates: start: 20110203, end: 20110601
  3. BACTRIM [Concomitant]
     Indication: PRODUCT USED FOR UNKNOWN INDICATION
     Route: 065
  4. VITAMIN D [Concomitant]
     Indication: PRODUCT USED FOR UNKNOWN INDICATION
     Route: 065
     Dates: start: 201101

REACTIONS (1)
  - Device breakage [Recovered/Resolved]
